FAERS Safety Report 7866067-3 (Version None)
Quarter: 2011Q4

REPORT INFORMATION
  Report Type: 
  Country: None (occurrence: None)
  Receive Date: 20111028
  Receipt Date: 20110418
  Transmission Date: 20120403
  Serious: No
  Sender: FDA-Public Use
  Company Number: US-GLAXOSMITHKLINE-A0923358A

PATIENT
  Age: 73 Year
  Sex: Female

DRUGS (7)
  1. WELCHOL [Concomitant]
  2. ASPIRIN [Concomitant]
  3. SPIRIVA [Concomitant]
  4. DYAZIDE [Concomitant]
  5. AVAPRO [Concomitant]
  6. ADVAIR DISKUS 100/50 [Suspect]
     Indication: CHRONIC OBSTRUCTIVE PULMONARY DISEASE
     Dosage: 1PUFF TWICE PER DAY
     Route: 055
     Dates: start: 20110327, end: 20110417
  7. CRESTOR [Concomitant]

REACTIONS (6)
  - THROAT TIGHTNESS [None]
  - DYSPHAGIA [None]
  - NONSPECIFIC REACTION [None]
  - DYSPHONIA [None]
  - PHARYNGEAL OEDEMA [None]
  - SWOLLEN TONGUE [None]
